FAERS Safety Report 8283451-7 (Version None)
Quarter: 2012Q2

REPORT INFORMATION
  Report Type: 
  Country: None (occurrence: None)
  Receive Date: 20120413
  Receipt Date: 20120404
  Transmission Date: 20120825
  Serious: Yes (Hospitalization)
  Sender: FDA-Public Use
  Company Number: AU-MPIJNJ-2012-02391

PATIENT

DRUGS (3)
  1. VELCADE [Suspect]
     Indication: MULTIPLE MYELOMA
     Dosage: UNK
     Dates: start: 20110601
  2. VELCADE [Suspect]
     Dosage: 1 MG/M2, UNK
  3. DEXAMETHASONE [Concomitant]
     Indication: MULTIPLE MYELOMA
     Dosage: UNK
     Dates: start: 20110601

REACTIONS (4)
  - HAEMOPHILUS SEPSIS [None]
  - INFLUENZA [None]
  - RENAL IMPAIRMENT [None]
  - NEUROPATHY PERIPHERAL [None]
